FAERS Safety Report 15651455 (Version 11)
Quarter: 2019Q4

REPORT INFORMATION
  Report Type: Spontaneous
  Country: JP (occurrence: JP)
  Receive Date: 20181123
  Receipt Date: 20191226
  Transmission Date: 20200122
  Serious: Yes (Death, Hospitalization, Other)
  Sender: FDA-Public Use
  Company Number: JP-BRISTOL-MYERS SQUIBB COMPANY-BMS-2018-110317

PATIENT
  Age: 67 Year
  Sex: Male

DRUGS (2)
  1. YERVOY [Suspect]
     Active Substance: IPILIMUMAB
     Indication: RENAL CELL CARCINOMA
     Dosage: UNK
     Route: 065
     Dates: start: 20180903, end: 20181108
  2. OPDIVO [Suspect]
     Active Substance: NIVOLUMAB
     Indication: RENAL CELL CARCINOMA
     Dosage: 240 MG, 2 TIMES/WK
     Route: 041
     Dates: start: 20180903, end: 20181108

REACTIONS (6)
  - C-reactive protein increased [Fatal]
  - Hyperthyroidism [Fatal]
  - Pneumonia aspiration [Fatal]
  - Renal failure [Fatal]
  - Hypopituitarism [Fatal]
  - Off label use [Unknown]

NARRATIVE: CASE EVENT DATE: 20181112
